FAERS Safety Report 7148483-0 (Version None)
Quarter: 2010Q4

REPORT INFORMATION
  Report Type: 
  Country: None (occurrence: None)
  Receive Date: 20101126
  Receipt Date: 20101115
  Transmission Date: 20110411
  Serious: Yes (Other)
  Sender: FDA-Public Use
  Company Number: 2010P1002637

PATIENT
  Age: 16 Day
  Sex: Female
  Weight: 2.15 kg

DRUGS (3)
  1. PROPAFENONE (NO PREF. NAME) [Suspect]
     Indication: SUPRAVENTRICULAR TACHYCARDIA
     Dosage: 10 MG/KG;QD;PO
     Route: 048
  2. CON MEDS [Concomitant]
  3. PREV MEDS [Concomitant]

REACTIONS (3)
  - PRODUCT TASTE ABNORMAL [None]
  - RESPIRATORY DISTRESS [None]
  - SALIVARY HYPERSECRETION [None]
